FAERS Safety Report 14253907 (Version 1)
Quarter: 2017Q4

REPORT INFORMATION
  Report Type: Spontaneous
  Country: FR (occurrence: FR)
  Receive Date: 20171206
  Receipt Date: 20171206
  Transmission Date: 20180321
  Serious: Yes (Other)
  Sender: FDA-Public Use
  Company Number: FR-009507513-1712FRA001402

PATIENT
  Age: 1 Day
  Sex: Female

DRUGS (1)
  1. CELESTENE CHRONODOSE [Suspect]
     Active Substance: BETAMETHASONE
     Dosage: UNK
     Route: 064

REACTIONS (3)
  - Foetal exposure during pregnancy [Recovered/Resolved]
  - Apgar score abnormal [Unknown]
  - Premature baby [Unknown]
